FAERS Safety Report 6790181-7 (Version None)
Quarter: 2010Q2

REPORT INFORMATION
  Report Type: 
  Country: None (occurrence: None)
  Receive Date: 20100624
  Receipt Date: 20100623
  Transmission Date: 20101027
  Serious: Yes (Other)
  Sender: FDA-Public Use
  Company Number: US-WYE-H14810010

PATIENT
  Sex: Female
  Weight: 81.72 kg

DRUGS (5)
  1. PRISTIQ [Suspect]
     Indication: DEPRESSION
     Route: 048
     Dates: start: 20090301, end: 20090901
  2. AMBIEN [Concomitant]
     Indication: INSOMNIA
  3. ANAFRANIL [Concomitant]
  4. WELLBUTRIN [Concomitant]
     Dosage: 150 MG, TWO IN THE MORNING AND ONE IN THE EVENING
  5. CYTOMEL [Concomitant]

REACTIONS (1)
  - POST PROCEDURAL HAEMORRHAGE [None]
